FAERS Safety Report 14686525 (Version 2)
Quarter: 2018Q2

REPORT INFORMATION
  Report Type: Spontaneous
  Country: FR (occurrence: FR)
  Receive Date: 20180327
  Receipt Date: 20180608
  Transmission Date: 20180711
  Serious: Yes (Death, Other)
  Sender: FDA-Public Use
  Company Number: FR-BAYER-2018-053636

PATIENT
  Age: 67 Year
  Sex: Male
  Weight: 83.36 kg

DRUGS (9)
  1. CLOPIDOGREL [Interacting]
     Active Substance: CLOPIDOGREL BISULFATE
     Indication: ANTIPLATELET THERAPY
  2. PERINDOPRIL [Concomitant]
     Active Substance: PERINDOPRIL
  3. TRINITRIN [Concomitant]
     Active Substance: NITROGLYCERIN
  4. WARFARIN [Interacting]
     Active Substance: WARFARIN
     Indication: ANTIPLATELET THERAPY
  5. ATORVASTATIN [Concomitant]
     Active Substance: ATORVASTATIN
  6. OMEPRAZOLE. [Concomitant]
     Active Substance: OMEPRAZOLE
  7. ACETYLSALICYLIC ACID({=100 MG) [Suspect]
     Active Substance: ASPIRIN
     Dosage: UNK
  8. OFLOXACIN. [Interacting]
     Active Substance: OFLOXACIN
     Indication: URINARY TRACT INFECTION
  9. BISOPROLOL [Concomitant]
     Active Substance: BISOPROLOL

REACTIONS (10)
  - Haemorrhage subcutaneous [Not Recovered/Not Resolved]
  - Laryngeal haematoma [Fatal]
  - Asphyxia [Fatal]
  - Labelled drug-drug interaction medication error [Fatal]
  - Drug interaction [None]
  - Anticoagulation drug level increased [Fatal]
  - Contraindicated product administered [Fatal]
  - International normalised ratio increased [Fatal]
  - Upper airway obstruction [Fatal]
  - Intra-abdominal haemorrhage [None]
